FAERS Safety Report 5760909-3 (Version None)
Quarter: 2008Q2

REPORT INFORMATION
  Report Type: 
  Country: None (occurrence: None)
  Receive Date: 20080512
  Receipt Date: 19921229
  Transmission Date: 20081010
  Serious: Yes (Death, Life-Threatening)
  Sender: FDA-Public Use
  Company Number: 920100639001

PATIENT
  Age: 12 Day
  Sex: Female
  Weight: 2.9 kg

DRUGS (6)
  1. ROCEPHIN [Suspect]
     Indication: ENTEROCOLITIS
     Dosage: 200 MG 1 PER DAY INTRAVENOUS
     Route: 042
     Dates: start: 19821216, end: 19921218
  2. FLAGYL [Concomitant]
  3. CALCIUM (CALCIUM NOS) [Concomitant]
  4. SODIUM CHLORIDE 0.9% [Concomitant]
  5. POTASSIUM CHLORIDE [Concomitant]
  6. GLUCOSE (GLUCOSE) [Concomitant]

REACTIONS (1)
  - SUDDEN DEATH [None]
